FAERS Safety Report 9022260 (Version 1)
Quarter: 2013Q1

REPORT INFORMATION
  Report Type: Spontaneous
  Country: US (occurrence: US)
  Receive Date: 20130118
  Receipt Date: 20130118
  Transmission Date: 20140127
  Serious: Yes (Other)
  Sender: FDA-Public Use
  Company Number: PHEH2013US001496

PATIENT
  Sex: Male

DRUGS (1)
  1. GLEEVEC [Suspect]
     Indication: GASTRIC CANCER
     Dosage: UNK UKN, UNK,
     Route: 048
     Dates: start: 20121205

REACTIONS (4)
  - Hallucination [Unknown]
  - Hypersomnia [Unknown]
  - Tongue disorder [Unknown]
  - Fatigue [Unknown]
